FAERS Safety Report 9601684 (Version 1)
Quarter: 2013Q4

REPORT INFORMATION
  Report Type: Spontaneous
  Country: US (occurrence: None)
  Receive Date: 20131004
  Receipt Date: 20131004
  Transmission Date: 20140711
  Serious: Yes (Hospitalization)
  Sender: FDA-Public Use
  Company Number: None

PATIENT
  Age: 87 None
  Sex: Male
  Weight: 74.8 kg

DRUGS (1)
  1. LISINOPRIL [Suspect]
     Dates: start: 20130829

REACTIONS (1)
  - Hyperkalaemia [None]
